FAERS Safety Report 12180541 (Version 1)
Quarter: 2016Q1

REPORT INFORMATION
  Report Type: Spontaneous
  Country: US (occurrence: None)
  Receive Date: 20160314
  Receipt Date: 20160314
  Transmission Date: 20160526
  Serious: Yes (Other)
  Sender: FDA-Public Use
  Company Number: None

PATIENT
  Age: 67 Year

DRUGS (16)
  1. METROPROL [Concomitant]
  2. DELEXENT [Concomitant]
  3. CELEBREX [Concomitant]
     Active Substance: CELECOXIB
  4. BEE POLIS [Concomitant]
  5. CELEBREX [Suspect]
     Active Substance: CELECOXIB
     Indication: SPINAL DISORDER
     Dosage: TAKEN BY MOUTH?ABOUT A YEAR
     Route: 048
  6. LISINIPRIL [Concomitant]
  7. AMEDRONE [Concomitant]
  8. WARFARIN [Concomitant]
     Active Substance: WARFARIN
  9. VITAMIN C [Concomitant]
     Active Substance: ASCORBIC ACID
  10. PLAVICS [Concomitant]
  11. XANAX [Concomitant]
     Active Substance: ALPRAZOLAM
  12. FIBER [Concomitant]
     Active Substance: PSYLLIUM HUSK
  13. CELEBREX [Suspect]
     Active Substance: CELECOXIB
     Indication: ARTHRITIS
     Dosage: TAKEN BY MOUTH?ABOUT A YEAR
     Route: 048
  14. MILK THISTLE [Concomitant]
     Active Substance: MILK THISTLE
  15. CALCIUM [Concomitant]
     Active Substance: CALCIUM
  16. VIT. D [Concomitant]

REACTIONS (8)
  - Blood urea increased [None]
  - Liver function test abnormal [None]
  - Drug interaction [None]
  - Connective tissue disorder [None]
  - Rash [None]
  - Back pain [None]
  - Pain in extremity [None]
  - Arthralgia [None]

NARRATIVE: CASE EVENT DATE: 20160312
